FAERS Safety Report 4313537-0 (Version None)
Quarter: 2004Q1

REPORT INFORMATION
  Report Type: 
  Country: None (occurrence: None)
  Receive Date: 20040308
  Receipt Date: 20040225
  Transmission Date: 20041129
  Serious: Yes (Hospitalization)
  Sender: FDA-Public Use
  Company Number: JP-GLAXOSMITHKLINE-B0324678A

PATIENT
  Sex: Male

DRUGS (3)
  1. PAXIL [Suspect]
     Dosage: 10MG TWICE PER DAY
  2. DEPAKENE [Suspect]
     Dosage: 200MG TWICE PER DAY
  3. ANAFRANIL [Suspect]
     Dosage: 10MG TWICE PER DAY

REACTIONS (2)
  - NEONATAL TACHYPNOEA [None]
  - TREMOR [None]
